FAERS Safety Report 7287860-4 (Version None)
Quarter: 2011Q1

REPORT INFORMATION
  Report Type: 
  Country: None (occurrence: None)
  Receive Date: 20110211
  Receipt Date: 20110209
  Transmission Date: 20110831
  Serious: No
  Sender: FDA-Public Use
  Company Number: US-PFIZER INC-2011029540

PATIENT
  Sex: Male
  Weight: 83.9 kg

DRUGS (2)
  1. ZOCOR [Concomitant]
     Indication: BLOOD CHOLESTEROL INCREASED
     Dosage: UNK
  2. NICOTROL [Suspect]
     Dosage: 10 MG, UNK
     Dates: start: 20110209

REACTIONS (1)
  - COUGH [None]
